APPROVED DRUG PRODUCT: BETOPTIC PILO
Active Ingredient: BETAXOLOL HYDROCHLORIDE; PILOCARPINE HYDROCHLORIDE
Strength: EQ 0.25% BASE;1.75%
Dosage Form/Route: SUSPENSION/DROPS;OPHTHALMIC
Application: N020619 | Product #001
Applicant: ALCON LABORATORIES INC
Approved: Apr 17, 1997 | RLD: No | RS: No | Type: DISCN